FAERS Safety Report 23262014 (Version 1)
Quarter: 2023Q4

REPORT INFORMATION
  Report Type: Other
  Country: US (occurrence: None)
  Receive Date: 20231205
  Receipt Date: 20231205
  Transmission Date: 20240110
  Serious: Yes (Death)
  Sender: FDA-Public Use
  Company Number: US-ROCHE-3433605

PATIENT
  Age: 55 Year
  Sex: Female

DRUGS (10)
  1. COTELLIC [Suspect]
     Active Substance: COBIMETINIB
     Indication: Skin cancer
     Route: 065
  2. ZELBORAF [Suspect]
     Active Substance: VEMURAFENIB
     Indication: Skin cancer
     Route: 065
     Dates: end: 20230927
  3. ALLOPURINOL [Concomitant]
     Active Substance: ALLOPURINOL
  4. CLONAZEPAM [Concomitant]
     Active Substance: CLONAZEPAM
  5. DEXAMETHASONE [Concomitant]
     Active Substance: DEXAMETHASONE
  6. ONDANSETRON [Concomitant]
     Active Substance: ONDANSETRON
  7. ROPINIROLE [Concomitant]
     Active Substance: ROPINIROLE
  8. FAMOTIDINE [Concomitant]
     Active Substance: FAMOTIDINE
  9. PROPRANOLOL [Concomitant]
     Active Substance: PROPRANOLOL HYDROCHLORIDE
  10. LISINOPRIL [Concomitant]
     Active Substance: LISINOPRIL

REACTIONS (1)
  - Death [Fatal]

NARRATIVE: CASE EVENT DATE: 20230927
